FAERS Safety Report 9618368 (Version 1)
Quarter: 2013Q4

REPORT INFORMATION
  Report Type: Spontaneous
  Country: PH (occurrence: PH)
  Receive Date: 20131014
  Receipt Date: 20131014
  Transmission Date: 20140711
  Serious: Yes (Disabling)
  Sender: FDA-Public Use
  Company Number: PH-BRISTOL-MYERS SQUIBB COMPANY-19524636

PATIENT
  Age: 62 Year
  Sex: Male
  Weight: 48 kg

DRUGS (4)
  1. ERBITUX SOLN FOR INF 5MG/ML [Suspect]
     Indication: TONGUE NEOPLASM MALIGNANT STAGE UNSPECIFIED
     Dosage: LOADING DOSE 600 MG (5 MG/ML)?SECOND DOSE REDUCED TO 300MG ON 27SEP13
     Route: 042
     Dates: start: 20130906
  2. CISPLATIN [Suspect]
     Dosage: ON DAY 1
  3. 5-FLUOROURACIL [Suspect]
     Dosage: FOR 4 DAYS.
  4. APPEBON [Concomitant]
     Indication: VITAMIN SUPPLEMENTATION
     Dosage: 1 DF: TABLET.
     Route: 048
     Dates: start: 20130806

REACTIONS (4)
  - Gingival swelling [Not Recovered/Not Resolved]
  - Swollen tongue [Not Recovered/Not Resolved]
  - Lip swelling [Not Recovered/Not Resolved]
  - Pain [Not Recovered/Not Resolved]
